FAERS Safety Report 10120962 (Version 1)
Quarter: 2014Q2

REPORT INFORMATION
  Report Type: Spontaneous
  Country: US (occurrence: US)
  Receive Date: 20140425
  Receipt Date: 20140425
  Transmission Date: 20141212
  Serious: Yes (Death, Congenital Anomaly)
  Sender: FDA-Public Use
  Company Number: US-GLAXOSMITHKLINE-A1063911A

PATIENT
  Age: 3 Month
  Sex: Male

DRUGS (4)
  1. ACITRETIN [Suspect]
     Indication: KERATITIS-ICHTHYOSIS-DEAFNESS SYNDROME
     Dosage: 1MG PER DAY
     Dates: start: 20140227
  2. ACETAMINOPHEN [Concomitant]
  3. BACTRIM [Concomitant]
  4. DIFLUCAN [Concomitant]

REACTIONS (7)
  - Sepsis [Fatal]
  - Keratitis-ichthyosis-deafness syndrome [Fatal]
  - Off label use [Unknown]
  - Drug administration error [Unknown]
  - Skin exfoliation [Unknown]
  - Skin infection [Unknown]
  - Skin disorder [Unknown]
